FAERS Safety Report 8144667-3 (Version None)
Quarter: 2012Q1

REPORT INFORMATION
  Report Type: 
  Country: None (occurrence: None)
  Receive Date: 20120217
  Receipt Date: 20120209
  Transmission Date: 20120608
  Serious: Yes (Other)
  Sender: FDA-Public Use
  Company Number: US-US-EMD SERONO, INC.-7104627

PATIENT
  Sex: Male

DRUGS (2)
  1. REBIF [Suspect]
     Indication: MULTIPLE SCLEROSIS
     Route: 058
     Dates: start: 20110816
  2. KLONOPIN [Concomitant]

REACTIONS (6)
  - MUSCLE RUPTURE [None]
  - PAIN [None]
  - FALL [None]
  - EYE DISORDER [None]
  - MENISCUS LESION [None]
  - TREMOR [None]
